FAERS Safety Report 9112622 (Version 1)
Quarter: 2013Q1

REPORT INFORMATION
  Report Type: Spontaneous
  Country: US (occurrence: US)
  Receive Date: 20130211
  Receipt Date: 20130211
  Transmission Date: 20140127
  Serious: Yes (Death, Other)
  Sender: FDA-Public Use
  Company Number: PHHY2012US044642

PATIENT
  Sex: Male

DRUGS (4)
  1. HYDRALAZINE [Suspect]
  2. CLONIDINE [Concomitant]
  3. MINOXIDIL [Concomitant]
  4. PROPRANOLOL [Concomitant]

REACTIONS (4)
  - Haemorrhagic stroke [Fatal]
  - Hydrocephalus [Unknown]
  - Encephalomalacia [Unknown]
  - Hypertension [Unknown]
